FAERS Safety Report 6433694-X (Version None)
Quarter: 2009Q4

REPORT INFORMATION
  Report Type: 
  Country: None (occurrence: None)
  Receive Date: 20091106
  Receipt Date: 20091106
  Transmission Date: 20100525
  Serious: Yes (Hospitalization)
  Sender: FDA-Public Use
  Company Number: None

PATIENT
  Age: 64 Year
  Sex: Male
  Weight: 92.5 kg

DRUGS (2)
  1. METOPROLOL TARTRATE [Suspect]
     Indication: HYPERTENSION
     Dosage: 50 MG BID PO
     Route: 048
     Dates: start: 20090227
  2. LISINOPRIL [Suspect]
     Indication: HYPERTENSION
     Dosage: 40 MG AM PO
     Route: 048
     Dates: start: 20090115

REACTIONS (2)
  - DIZZINESS [None]
  - HYPOTENSION [None]
